FAERS Safety Report 9794578 (Version 4)
Quarter: 2014Q3

REPORT INFORMATION
  Report Type: Spontaneous
  Country: US (occurrence: US)
  Receive Date: 20140102
  Receipt Date: 20140915
  Transmission Date: 20150326
  Serious: Yes (Death, Life-Threatening, Hospitalization)
  Sender: FDA-Public Use
  Company Number: US-CELGENEUS-163-21880-13125019

PATIENT
  Age: 71 Year
  Sex: Male
  Weight: 89.44 kg

DRUGS (56)
  1. FUROSEMIDE. [Concomitant]
     Active Substance: FUROSEMIDE
     Dosage: 40 MILLIGRAM
     Route: 048
     Dates: start: 20130811
  2. GABAPENTIN. [Concomitant]
     Active Substance: GABAPENTIN
     Dosage: 300 MILLIGRAM
     Route: 048
     Dates: start: 20130811
  3. REGLAN [Concomitant]
     Active Substance: METOCLOPRAMIDE HYDROCHLORIDE
     Indication: PRODUCT USED FOR UNKNOWN INDICATION
     Dosage: 20 MILLIGRAM
     Route: 041
  4. POTASSIUM CHLORIDE. [Concomitant]
     Active Substance: POTASSIUM CHLORIDE
     Indication: PRODUCT USED FOR UNKNOWN INDICATION
     Dosage: 20 MILLIEQUIVALENTS
     Route: 065
     Dates: start: 20130610
  5. WARFARIN [Concomitant]
     Active Substance: WARFARIN
     Indication: PRODUCT USED FOR UNKNOWN INDICATION
     Dosage: 3 MILLIGRAM
     Route: 048
     Dates: start: 20130610
  6. DECADRON [Concomitant]
     Active Substance: DEXAMETHASONE
     Indication: PRODUCT USED FOR UNKNOWN INDICATION
     Route: 065
     Dates: start: 20130214
  7. ATIVAN [Concomitant]
     Active Substance: LORAZEPAM
     Indication: AGITATION
     Dosage: 1 - 2MG
     Route: 065
  8. VENTOLIN HFA [Concomitant]
     Active Substance: ALBUTEROL SULFATE
     Indication: PRODUCT USED FOR UNKNOWN INDICATION
     Dosage: 2 PUFF
     Route: 055
     Dates: start: 20130610
  9. VENTOLIN HFA [Concomitant]
     Active Substance: ALBUTEROL SULFATE
     Dosage: 2 PUFF
     Route: 055
     Dates: start: 20130811
  10. GABAPENTIN. [Concomitant]
     Active Substance: GABAPENTIN
     Indication: PRODUCT USED FOR UNKNOWN INDICATION
     Dosage: 300 MILLIGRAM
     Route: 048
     Dates: start: 20130610
  11. FLAGYL [Concomitant]
     Active Substance: METRONIDAZOLE\METRONIDAZOLE HYDROCHLORIDE
     Indication: CLOSTRIDIUM DIFFICILE INFECTION
     Dosage: 1000 MILLIGRAM
     Route: 041
  12. OXYGEN. [Concomitant]
     Active Substance: OXYGEN
     Dosage: 3 - 4 LITERS
     Route: 055
  13. COMPAZINE [Concomitant]
     Active Substance: PROCHLORPERAZINE MALEATE
     Indication: PRODUCT USED FOR UNKNOWN INDICATION
     Dosage: 40 MILLIGRAM
     Route: 048
     Dates: start: 20130118
  14. METOPROLOL TARTRATE. [Concomitant]
     Active Substance: METOPROLOL TARTRATE
     Indication: PRODUCT USED FOR UNKNOWN INDICATION
     Dosage: 50 MILLIGRAM
     Route: 048
     Dates: start: 20130811
  15. ALKERAN [Concomitant]
     Active Substance: MELPHALAN
     Indication: PRODUCT USED FOR UNKNOWN INDICATION
     Route: 065
  16. CALCIUM CARBONATE. [Concomitant]
     Active Substance: CALCIUM CARBONATE
     Dosage: 1000 MILLIGRAM
     Route: 048
     Dates: start: 20130811
  17. SIMVASTATIN. [Concomitant]
     Active Substance: SIMVASTATIN
     Dosage: 40 MILLIGRAM
     Route: 048
     Dates: start: 20130811
  18. PEPCID [Concomitant]
     Active Substance: FAMOTIDINE
     Indication: PRODUCT USED FOR UNKNOWN INDICATION
     Dosage: 20 MILLIGRAM
     Route: 041
  19. LEVOPHED [Concomitant]
     Active Substance: NOREPINEPHRINE BITARTRATE
     Indication: PRODUCT USED FOR UNKNOWN INDICATION
     Route: 041
  20. SYMBICORT [Concomitant]
     Active Substance: BUDESONIDE\FORMOTEROL FUMARATE DIHYDRATE
     Dosage: 160 - 4.5 MCG, 2 PUFF
     Route: 055
     Dates: start: 20130811
  21. ZOFRAN [Concomitant]
     Active Substance: ONDANSETRON HYDROCHLORIDE
     Indication: PRODUCT USED FOR UNKNOWN INDICATION
     Dosage: 24 MILLIGRAM
     Route: 048
     Dates: start: 20131122
  22. TAMSULOSIN [Concomitant]
     Active Substance: TAMSULOSIN
     Indication: PRODUCT USED FOR UNKNOWN INDICATION
     Dosage: 2 CAPSULE
     Route: 065
     Dates: start: 20130610
  23. TAMSULOSIN [Concomitant]
     Active Substance: TAMSULOSIN
     Dosage: .8 MILLIGRAM
     Route: 048
     Dates: start: 20130811
  24. CALCIUM CARBONATE. [Concomitant]
     Active Substance: CALCIUM CARBONATE
     Indication: PRODUCT USED FOR UNKNOWN INDICATION
     Dosage: 1000 MILLIGRAM
     Route: 048
     Dates: start: 20130311
  25. WARFARIN [Concomitant]
     Active Substance: WARFARIN
     Dosage: 2 MILLIGRAM
     Route: 048
     Dates: start: 20130811
  26. SIMVASTATIN. [Concomitant]
     Active Substance: SIMVASTATIN
     Indication: PRODUCT USED FOR UNKNOWN INDICATION
     Route: 048
     Dates: start: 20130117
  27. DECADRON [Concomitant]
     Active Substance: DEXAMETHASONE
     Route: 048
     Dates: start: 20130830
  28. VANCOMYCIN [Concomitant]
     Active Substance: VANCOMYCIN
     Indication: CLOSTRIDIUM DIFFICILE INFECTION
     Dosage: 1000 MILLIGRAM
     Route: 048
  29. GLYCOPYRROLATE. [Concomitant]
     Active Substance: GLYCOPYRROLATE
     Indication: PAIN
     Dosage: 0.2 -0.4MG
     Route: 065
  30. REVLIMID [Suspect]
     Active Substance: LENALIDOMIDE
     Dosage: 10 MILLIGRAM
     Route: 048
     Dates: start: 201309, end: 20131201
  31. OMEPRAZOLE. [Concomitant]
     Active Substance: OMEPRAZOLE
     Indication: PRODUCT USED FOR UNKNOWN INDICATION
     Dosage: 20 MILLIGRAM
     Route: 048
  32. MIRTAZAPINE. [Concomitant]
     Active Substance: MIRTAZAPINE
     Indication: PRODUCT USED FOR UNKNOWN INDICATION
     Route: 048
     Dates: start: 20130811
  33. POTASSIUM CHLORIDE. [Concomitant]
     Active Substance: POTASSIUM CHLORIDE
     Dosage: 10 MILLIEQUIVALENTS
     Route: 065
     Dates: start: 20130810
  34. FUROSEMIDE. [Concomitant]
     Active Substance: FUROSEMIDE
     Indication: PRODUCT USED FOR UNKNOWN INDICATION
     Dosage: 80 MILLIGRAM
     Route: 065
     Dates: start: 20130610
  35. METOPROLOL SUCCINATE. [Concomitant]
     Active Substance: METOPROLOL SUCCINATE
     Indication: PRODUCT USED FOR UNKNOWN INDICATION
     Route: 041
  36. OXYCODONE [Concomitant]
     Active Substance: OXYCODONE
     Indication: PRODUCT USED FOR UNKNOWN INDICATION
     Dosage: 1 - 3 TABS
     Route: 048
     Dates: start: 20130610
  37. ROCEPHIN [Concomitant]
     Active Substance: CEFTRIAXONE SODIUM
     Indication: PRODUCT USED FOR UNKNOWN INDICATION
     Dosage: 1 GRAM
     Route: 041
  38. AMIODARONE [Concomitant]
     Active Substance: AMIODARONE
     Indication: PRODUCT USED FOR UNKNOWN INDICATION
     Route: 041
  39. ATIVAN [Concomitant]
     Active Substance: LORAZEPAM
     Indication: DYSPNOEA
  40. TYLENOL [Concomitant]
     Active Substance: ACETAMINOPHEN
     Indication: PYREXIA
     Dosage: 3900 MILLIGRAM
     Route: 065
  41. SYMBICORT [Concomitant]
     Active Substance: BUDESONIDE\FORMOTEROL FUMARATE DIHYDRATE
     Indication: PRODUCT USED FOR UNKNOWN INDICATION
     Dosage: 160 - 4.5 MCG, 2 PUFF
     Route: 055
     Dates: start: 20130610
  42. MILK OF MAGNESIA [Concomitant]
     Active Substance: MAGNESIUM HYDROXIDE
     Indication: PRODUCT USED FOR UNKNOWN INDICATION
     Route: 048
     Dates: start: 20131122
  43. REVLIMID [Suspect]
     Active Substance: LENALIDOMIDE
     Indication: PLASMA CELL MYELOMA
     Dosage: 25 MILLIGRAM
     Route: 048
     Dates: start: 20130801
  44. DECADRON [Concomitant]
     Active Substance: DEXAMETHASONE
     Dosage: 8 MILLIGRAM
     Route: 041
  45. GLYCOPYRROLATE. [Concomitant]
     Active Substance: GLYCOPYRROLATE
     Indication: DYSPNOEA
  46. DUONEB [Concomitant]
     Active Substance: ALBUTEROL SULFATE\IPRATROPIUM BROMIDE
     Indication: DYSPNOEA
     Route: 065
  47. OXYGEN. [Concomitant]
     Active Substance: OXYGEN
     Indication: PRODUCT USED FOR UNKNOWN INDICATION
     Route: 055
     Dates: start: 20131203
  48. ZOMETA [Concomitant]
     Active Substance: ZOLEDRONIC ACID
     Indication: BONE DISORDER
     Route: 065
  49. IVIG [Concomitant]
     Active Substance: HUMAN IMMUNOGLOBULIN G
     Indication: INFECTION PROPHYLAXIS
     Route: 041
  50. SALINE [Concomitant]
     Active Substance: SODIUM CHLORIDE
     Indication: HYPOTENSION
     Dosage: 2 LITERS
     Route: 065
     Dates: start: 20131203
  51. METOPROLOL SUCCINATE. [Concomitant]
     Active Substance: METOPROLOL SUCCINATE
     Dosage: 50 MILLIGRAM
     Route: 048
     Dates: start: 20130610
  52. ASPIRIN. [Concomitant]
     Active Substance: ASPIRIN
     Indication: PRODUCT USED FOR UNKNOWN INDICATION
     Dosage: 81 MILLIGRAM
     Route: 048
     Dates: start: 20130611
  53. LISPRO INSULIN [Concomitant]
     Active Substance: INSULIN LISPRO
     Indication: PRODUCT USED FOR UNKNOWN INDICATION
     Dosage: SLIDING SCALE
     Route: 065
  54. VERSED [Concomitant]
     Active Substance: MIDAZOLAM HYDROCHLORIDE
     Indication: PRODUCT USED FOR UNKNOWN INDICATION
     Route: 065
  55. MORPHINE [Concomitant]
     Active Substance: MORPHINE
     Indication: PAIN
     Dosage: 1-4MG
     Route: 041
  56. MORPHINE [Concomitant]
     Active Substance: MORPHINE
     Indication: DYSPNOEA

REACTIONS (4)
  - Pneumonia pneumococcal [Fatal]
  - Multi-organ failure [Fatal]
  - Sepsis [Fatal]
  - Pancytopenia [Fatal]

NARRATIVE: CASE EVENT DATE: 20131203
